FAERS Safety Report 13277348 (Version 1)
Quarter: 2017Q1

REPORT INFORMATION
  Report Type: Spontaneous
  Country: BR (occurrence: BR)
  Receive Date: 20170228
  Receipt Date: 20170228
  Transmission Date: 20170428
  Serious: Yes (Other)
  Sender: FDA-Public Use
  Company Number: BR-PFIZER INC-2017081013

PATIENT
  Age: 43 Year
  Weight: 52 kg

DRUGS (8)
  1. MESACOL /00747601/ [Concomitant]
     Active Substance: MESALAMINE
     Dosage: 800 MG, EVERY 8 HOURS
     Route: 048
  2. ANSENTRON [Concomitant]
     Dosage: 4 MG, EVERY 8 HOURS
     Route: 042
  3. MORPHINE [Concomitant]
     Active Substance: MORPHINE
     Dosage: 0.2 MG, AS MEDICAL DECISION
     Route: 042
  4. DIPYRONE [Concomitant]
     Active Substance: DIPYRONE
     Dosage: 1000 MG, EVERY 6 HOURS
     Route: 042
  5. ESOMEPRAZOLE [Concomitant]
     Active Substance: ESOMEPRAZOLE
     Dosage: 40 MG, 2X/DAY
     Route: 042
  6. FLORATIL /00838001/ [Concomitant]
     Dosage: 100 MG, EVERY 6 HOURS
     Route: 048
  7. LYRICA [Suspect]
     Active Substance: PREGABALIN
     Dosage: 300 MG, 2X/DAY (EVERY 12 HOURS)
     Route: 048
  8. TRAMADOL. [Concomitant]
     Active Substance: TRAMADOL
     Dosage: 100 MG, AS NEEDED
     Route: 042

REACTIONS (3)
  - Anaphylactic reaction [Recovered/Resolved]
  - Lip oedema [Recovered/Resolved]
  - Erythema [Recovered/Resolved]

NARRATIVE: CASE EVENT DATE: 20161120
